FAERS Safety Report 4565899-7 (Version None)
Quarter: 2005Q1

REPORT INFORMATION
  Report Type: 
  Country: None (occurrence: None)
  Receive Date: 20050131
  Receipt Date: 20040823
  Transmission Date: 20050727
  Serious: Yes (Disabling, Other)
  Sender: FDA-Public Use
  Company Number: GBWYE922222JUL04

PATIENT
  Sex: Female
  Weight: 76 kg

DRUGS (9)
  1. ENBREL [Suspect]
     Indication: RHEUMATOID ARTHRITIS
     Route: 058
     Dates: start: 20040330, end: 20040722
  2. CO-CODAMAOL [Concomitant]
     Indication: PAIN
     Dosage: UNKNOWN
  3. BURINEX [Concomitant]
     Indication: HYPERTENSION
     Dosage: UNKNOWN
  4. CITALOPRAM [Concomitant]
     Indication: DEPRESSION
     Dosage: UNKNOWN
  5. LANSOPRAZOLE [Concomitant]
     Indication: DYSPEPSIA
     Dosage: UNKNOWN
  6. PREDNISOLONE [Concomitant]
  7. DIHYDROCODEINE [Concomitant]
  8. PARACETAMOL [Concomitant]
  9. ARCOXIA (MERCK SHARP + DOHME) [Concomitant]

REACTIONS (2)
  - CORNEAL ABRASION [None]
  - FACIAL PALSY [None]
